FAERS Safety Report 8717594 (Version 2)
Quarter: 2012Q4

REPORT INFORMATION
  Report Type: 
  Country: US (occurrence: US)
  Receive Date: 20120810
  Receipt Date: 20121010
  Transmission Date: 20130627
  Serious: No
  Sender: FDA-Public Use
  Company Number: US-ELI_LILLY_AND_COMPANY-US201008000319

PATIENT
  Sex: Female

DRUGS (3)
  1. FORTEO [Suspect]
     Indication: OSTEOPOROSIS
     Dosage: 20 ug, daily (1/D)
     Dates: start: 20100716
  2. FORTEO [Suspect]
     Dosage: 20 ug, qd
     Dates: start: 20100716
  3. PREDNISONE [Concomitant]

REACTIONS (5)
  - Rectal haemorrhage [Recovered/Resolved]
  - Weight increased [Unknown]
  - Injection site erythema [Unknown]
  - Malaise [Unknown]
  - Drug dose omission [Unknown]
